FAERS Safety Report 9281738 (Version 3)
Quarter: 2013Q4

REPORT INFORMATION
  Report Type: Spontaneous
  Country: US (occurrence: US)
  Receive Date: 20130510
  Receipt Date: 20131113
  Transmission Date: 20140711
  Serious: Yes (Death, Hospitalization)
  Sender: FDA-Public Use
  Company Number: US-B.I. PHARMACEUTICALS,INC./RIDGEFIELD-2013-BI-12702BP

PATIENT
  Age: 83 Year
  Sex: Male
  Weight: 90.72 kg

DRUGS (14)
  1. PRADAXA [Suspect]
     Indication: ATRIAL FIBRILLATION
     Dosage: 300 MG
     Dates: start: 20110414, end: 20110426
  2. METANX [Concomitant]
  3. TRICOR [Concomitant]
     Dosage: 145 MG
     Dates: start: 200611, end: 201104
  4. POTASSIUM CHLORIDE [Concomitant]
     Dosage: 20 MEQ
  5. I CAPS [Concomitant]
  6. ACTOPLUS MET [Concomitant]
     Dosage: 15 MG
     Dates: start: 200612, end: 201104
  7. DILTIAZEM ER [Concomitant]
     Dosage: 300 MG
     Dates: start: 200611, end: 201104
  8. FISH OIL [Concomitant]
     Dosage: 1200 MG
  9. QUINAPRIL [Concomitant]
     Dosage: 40 MG
     Dates: start: 200612, end: 201104
  10. CITALOPRAM [Concomitant]
     Dosage: 20 MG
  11. CRESTOR [Concomitant]
     Dosage: 10 MG
     Dates: start: 200611, end: 201104
  12. FUROSEMIDE [Concomitant]
     Dosage: 40 MG
     Dates: start: 200704, end: 201104
  13. ZOLPIDEM [Concomitant]
     Dosage: 5 MG
     Dates: start: 200901, end: 201104
  14. VITAMIN D [Concomitant]

REACTIONS (3)
  - Cerebral haemorrhage [Fatal]
  - Fall [Unknown]
  - Head injury [Unknown]
